FAERS Safety Report 13962752 (Version 1)
Quarter: 2017Q3

REPORT INFORMATION
  Report Type: Spontaneous
  Country: US (occurrence: US)
  Receive Date: 20170912
  Receipt Date: 20170912
  Transmission Date: 20171128
  Serious: Yes (Disabling, Other)
  Sender: FDA-Public Use
  Company Number: None

PATIENT
  Age: 80 Year
  Sex: Male
  Weight: 112.5 kg

DRUGS (5)
  1. LOVASTATIN. [Concomitant]
     Active Substance: LOVASTATIN
  2. VITAMIN D3 [Concomitant]
     Active Substance: CHOLECALCIFEROL
  3. LEVOFLOXACIN. [Suspect]
     Active Substance: LEVOFLOXACIN
     Indication: POST PROCEDURAL INFECTION
     Dosage: ?          QUANTITY:10 TABLET(S);?
     Route: 048
     Dates: start: 20170720, end: 20170730
  4. AMIODARONE [Concomitant]
     Active Substance: AMIODARONE
  5. LOSARTIN [Concomitant]
     Active Substance: LOSARTAN

REACTIONS (3)
  - Tendonitis [None]
  - Tendon rupture [None]
  - Gait inability [None]

NARRATIVE: CASE EVENT DATE: 20170720
